FAERS Safety Report 14253216 (Version 2)
Quarter: 2018Q1

REPORT INFORMATION
  Report Type: Spontaneous
  Country: US (occurrence: US)
  Receive Date: 20171205
  Receipt Date: 20180321
  Transmission Date: 20180508
  Serious: No
  Sender: FDA-Public Use
  Company Number: US-LUNDBECK-DKLU2039849

PATIENT
  Sex: Female

DRUGS (3)
  1. NORTHERA [Suspect]
     Active Substance: DROXIDOPA
     Indication: PRODUCT USED FOR UNKNOWN INDICATION
     Dosage: SCHEDULE C
     Route: 048
     Dates: start: 20170621
  2. NORTHERA [Suspect]
     Active Substance: DROXIDOPA
     Dosage: AM
     Route: 048
     Dates: start: 2017
  3. NORTHERA [Suspect]
     Active Substance: DROXIDOPA
     Route: 048
     Dates: start: 2017

REACTIONS (13)
  - Heart rate abnormal [Unknown]
  - Chest discomfort [Unknown]
  - Fatigue [Unknown]
  - Urinary tract infection [Unknown]
  - Dyspnoea [Unknown]
  - Dizziness [Unknown]
  - Headache [Unknown]
  - Nausea [Unknown]
  - Visual impairment [Unknown]
  - Syncope [Unknown]
  - Exercise tolerance decreased [Unknown]
  - Palpitations [Unknown]
  - Blood pressure fluctuation [Unknown]
